FAERS Safety Report 6166983-7 (Version None)
Quarter: 2009Q2

REPORT INFORMATION
  Report Type: 
  Country: None (occurrence: None)
  Receive Date: 20090423
  Receipt Date: 20090423
  Transmission Date: 20091009
  Serious: No
  Sender: FDA-Public Use
  Company Number: None

PATIENT
  Sex: Female
  Weight: 68.0396 kg

DRUGS (1)
  1. NASONEX [Suspect]
     Indication: POLYP
     Dates: start: 20081101, end: 20081108

REACTIONS (1)
  - CHORIORETINOPATHY [None]
